APPROVED DRUG PRODUCT: NAVANE
Active Ingredient: THIOTHIXENE HYDROCHLORIDE
Strength: EQ 10MG BASE/VIAL
Dosage Form/Route: INJECTABLE;INJECTION
Application: N016904 | Product #002
Applicant: PFIZER INC
Approved: Approved Prior to Jan 1, 1982 | RLD: No | RS: No | Type: DISCN